FAERS Safety Report 8163697-9 (Version None)
Quarter: 2012Q1

REPORT INFORMATION
  Report Type: 
  Country: None (occurrence: None)
  Receive Date: 20120224
  Receipt Date: 20120210
  Transmission Date: 20120608
  Serious: Yes (Other)
  Sender: FDA-Public Use
  Company Number: PHHY2011AU76259

PATIENT
  Sex: Female

DRUGS (7)
  1. XELODA [Concomitant]
     Dosage: 500 MG, TID
     Route: 048
     Dates: start: 20110401
  2. SANDOSTATIN LAR [Suspect]
     Dosage: 10 MG, QMO
     Route: 030
  3. LIDOCAINE [Concomitant]
  4. SANDOSTATIN LAR [Suspect]
     Dosage: 30 MG, QMO
     Route: 030
     Dates: start: 20110104
  5. PERINDOPRIL ERBUMINE [Concomitant]
     Dosage: 5 MG, DAILY
     Route: 048
     Dates: start: 20100101
  6. ANTIBIOTICS [Concomitant]
  7. ENOXAPARIN SODIUM [Concomitant]
     Dosage: 400 MG, UNK
     Route: 058
     Dates: start: 20110401

REACTIONS (5)
  - INJECTION SITE PAIN [None]
  - MALAISE [None]
  - INJECTION SITE SWELLING [None]
  - INJECTION SITE ABSCESS [None]
  - INJECTION SITE WARMTH [None]
